FAERS Safety Report 19602951 (Version 1)
Quarter: 2021Q3

REPORT INFORMATION
  Report Type: Spontaneous
  Country: LT (occurrence: LT)
  Receive Date: 20210723
  Receipt Date: 20210723
  Transmission Date: 20211014
  Serious: Yes (Death, Hospitalization)
  Sender: FDA-Public Use
  Company Number: LT-MYLANLABS-2021M1044256

PATIENT
  Age: 45 Year
  Sex: Male

DRUGS (5)
  1. TORASEMIDE [Concomitant]
     Active Substance: TORSEMIDE
     Indication: DIURETIC THERAPY
     Dosage: 20 MILLIGRAM, QD
     Route: 048
  2. DEXAMETHASONE. [Suspect]
     Active Substance: DEXAMETHASONE
     Indication: SYMPTOMATIC TREATMENT
     Dosage: 6 MONTHS PRIOR TO CURRENT PRESENTATION
     Route: 065
  3. DEXAMETHASONE. [Suspect]
     Active Substance: DEXAMETHASONE
     Dosage: 1 MILLIGRAM, QD DURING SECOND HOSPITAL ADMISSION
     Route: 065
  4. SPIRONOLACTONE. [Concomitant]
     Active Substance: SPIRONOLACTONE
     Indication: DIURETIC THERAPY
     Dosage: 25 MILLIGRAM, QD
     Route: 048
  5. SULFAMETHOXAZOLE AND TRIMETHOPRIM [Concomitant]
     Active Substance: SULFAMETHOXAZOLE\TRIMETHOPRIM
     Indication: PNEUMONIA
     Dosage: 1 DOSAGE FORM, BIDSULFAMETHOXAZOLE/TRIMETHOPRIM 400/80MG
     Route: 065

REACTIONS (3)
  - Peritonitis [Unknown]
  - Peptic ulcer perforation [Fatal]
  - Sepsis [Fatal]
